FAERS Safety Report 6295525-0 (Version None)
Quarter: 2009Q3

REPORT INFORMATION
  Report Type: 
  Country: None (occurrence: None)
  Receive Date: 20090731
  Receipt Date: 20090715
  Transmission Date: 20100115
  Serious: Yes (Hospitalization)
  Sender: FDA-Public Use
  Company Number: IDA-00234

PATIENT
  Age: 86 Year
  Sex: Female

DRUGS (1)
  1. SUMIAL (PROPRANOLOL HYDROCHLORIDE) STRENGTH: 10MG [Suspect]
     Indication: ESSENTIAL TREMOR
     Dosage: 20 MG DAILY ORAL FORMULATION: TABLET
     Route: 048
     Dates: start: 20080101, end: 20081227

REACTIONS (2)
  - ACUTE RESPIRATORY FAILURE [None]
  - RESPIRATORY TRACT INFECTION [None]
